FAERS Safety Report 25168858 (Version 1)
Quarter: 2025Q2

REPORT INFORMATION
  Report Type: Spontaneous
  Country: US (occurrence: US)
  Receive Date: 20250407
  Receipt Date: 20250407
  Transmission Date: 20250717
  Serious: No
  Sender: INTRA-CELLULAR THERAPIES
  Company Number: US-INTRA-CELLULAR THERAPIES, INC.-2025ICT00046

PATIENT
  Age: 3 Decade
  Sex: Female

DRUGS (3)
  1. CAPLYTA [Suspect]
     Active Substance: LUMATEPERONE
     Indication: Schizophrenia
  2. CAPLYTA [Suspect]
     Active Substance: LUMATEPERONE
     Indication: Schizoaffective disorder
  3. UNSPECIFIED INGREDIENT [Suspect]
     Active Substance: UNSPECIFIED INGREDIENT
     Indication: Hypertension

REACTIONS (4)
  - Photosensitivity reaction [Not Recovered/Not Resolved]
  - Drug interaction [Not Recovered/Not Resolved]
  - Nausea [Unknown]
  - Decreased appetite [Unknown]

NARRATIVE: CASE EVENT DATE: 20241201
